FAERS Safety Report 8592132-1 (Version None)
Quarter: 2012Q3

REPORT INFORMATION
  Report Type: 
  Country: None (occurrence: None)
  Receive Date: 20120814
  Receipt Date: 20120809
  Transmission Date: 20120928
  Serious: Yes (Hospitalization)
  Sender: FDA-Public Use
  Company Number: US-BAYER-2012-081512

PATIENT

DRUGS (1)
  1. AVELOX [Suspect]
     Indication: BRONCHITIS
     Dosage: 400 MG, UNK
     Route: 048

REACTIONS (5)
  - DIARRHOEA [None]
  - TACHYCARDIA [None]
  - VOMITING [None]
  - CHEST PAIN [None]
  - PALPITATIONS [None]
